FAERS Safety Report 11449720 (Version 3)
Quarter: 2016Q1

REPORT INFORMATION
  Report Type: Spontaneous
  Country: US (occurrence: US)
  Receive Date: 20150903
  Receipt Date: 20160115
  Transmission Date: 20160525
  Serious: No
  Sender: FDA-Public Use
  Company Number: PHEH2015US016878

PATIENT

DRUGS (1)
  1. FORADIL [Suspect]
     Active Substance: FORMOTEROL FUMARATE
     Indication: ASTHMA
     Dosage: 6 DF (10 X 6 CAPSULE)
     Route: 055

REACTIONS (3)
  - Choking [Unknown]
  - Device material issue [Unknown]
  - Asthma [Unknown]
